FAERS Safety Report 14149396 (Version 1)
Quarter: 2017Q4

REPORT INFORMATION
  Report Type: Spontaneous
  Country: AU (occurrence: AU)
  Receive Date: 20171101
  Receipt Date: 20171101
  Transmission Date: 20180321
  Serious: Yes (Other)
  Sender: FDA-Public Use
  Company Number: None

PATIENT
  Age: 19 Year
  Sex: Male
  Weight: 55 kg

DRUGS (1)
  1. CIPRAMIL [Suspect]
     Active Substance: CITALOPRAM HYDROBROMIDE
     Indication: DEPRESSION
     Dosage: ?          QUANTITY:0.5 TABLET(S);?
     Route: 048
     Dates: start: 20160201, end: 20170201

REACTIONS (8)
  - Libido decreased [None]
  - Sexual dysfunction [None]
  - Erectile dysfunction [None]
  - Cognitive disorder [None]
  - Memory impairment [None]
  - Emotional disorder [None]
  - Anorgasmia [None]
  - Withdrawal syndrome [None]

NARRATIVE: CASE EVENT DATE: 20170201
